FAERS Safety Report 4752798-0 (Version None)
Quarter: 2005Q3

REPORT INFORMATION
  Report Type: 
  Country: None (occurrence: None)
  Receive Date: 20050823
  Receipt Date: 20050329
  Transmission Date: 20060218
  Serious: Yes (Other)
  Sender: FDA-Public Use
  Company Number: 2005043278

PATIENT
  Age: 30 Year
  Sex: Female
  Weight: 102.9665 kg

DRUGS (1)
  1. NORVASC [Suspect]
     Indication: HYPERTENSION
     Dosage: 5 MG (5 MG, 1 IN 24 HR), ORAL; 10 MG (5 MG, 2 IN 24 HR), ORAL
     Route: 048
     Dates: start: 20030401

REACTIONS (5)
  - BLOOD PRESSURE INCREASED [None]
  - DIZZINESS [None]
  - HEADACHE [None]
  - MALAISE [None]
  - STOMACH DISCOMFORT [None]
